FAERS Safety Report 14989795 (Version 7)
Quarter: 2020Q1

REPORT INFORMATION
  Report Type: Spontaneous
  Country: CA (occurrence: CA)
  Receive Date: 20180608
  Receipt Date: 20200129
  Transmission Date: 20200409
  Serious: Yes (Hospitalization)
  Sender: FDA-Public Use
  Company Number: CA-CELLTRION INC.-2018CA019070

PATIENT

DRUGS (18)
  1. SALOFALK [Concomitant]
     Dosage: 1000 MG, 2X/DAY
     Route: 048
     Dates: start: 2007
  2. INFLECTRA [Suspect]
     Active Substance: INFLIXIMAB-DYYB
     Dosage: 370 MG, (4 VIALS/ 0, 2, 6 WEEKS, THEN EVERY 8 WEEKS)
     Route: 042
     Dates: start: 20180214
  3. INFLECTRA [Suspect]
     Active Substance: INFLIXIMAB-DYYB
     Indication: CROHN^S DISEASE
     Dosage: 370 MG,(4 VIALS/ 0, 2, 6 WEEKS, THEN EVERY 8 WEEKS)
     Route: 042
     Dates: start: 20180201
  4. INFLECTRA [Suspect]
     Active Substance: INFLIXIMAB-DYYB
     Dosage: 370 MG, (4 VIALS/0, 2, 6 WEEKS, THEN EVERY 8 WEEKS)
     Route: 042
     Dates: start: 20180730
  5. METHYLPREDNISOLONE. [Concomitant]
     Active Substance: METHYLPREDNISOLONE
     Dosage: 30 MG, 2X/DAY
     Route: 042
     Dates: start: 20180127
  6. IMURAN [Concomitant]
     Active Substance: AZATHIOPRINE
     Dosage: 150 MG, 1X/DAY
     Route: 048
     Dates: start: 20180316
  7. INFLECTRA [Suspect]
     Active Substance: INFLIXIMAB-DYYB
     Dosage: 370 MG, 12 WEEKS AFTER LAST INFUSION
     Route: 042
     Dates: start: 20180605
  8. INFLECTRA [Suspect]
     Active Substance: INFLIXIMAB-DYYB
     Dosage: 370 MG, (4 VIALS/0, 2, 6 WEEKS, THEN EVERY 8 WEEKS)
     Route: 042
     Dates: start: 20190115
  9. INFLECTRA [Suspect]
     Active Substance: INFLIXIMAB-DYYB
     Dosage: 500 MG,  (EVERY 8 WEEKS)
     Route: 042
     Dates: start: 20190626
  10. INFLECTRA [Suspect]
     Active Substance: INFLIXIMAB-DYYB
     Dosage: 500 MG, EVERY 8 WEEKS
     Route: 042
     Dates: start: 20190827
  11. INFLECTRA [Suspect]
     Active Substance: INFLIXIMAB-DYYB
     Dosage: 370 MG, (4 VIALS/0, 2, 6 WEEKS, THEN EVERY 8 WEEKS)
     Route: 042
     Dates: start: 20180925
  12. INFLECTRA [Suspect]
     Active Substance: INFLIXIMAB-DYYB
     Dosage: UNK
     Route: 042
     Dates: start: 20190508
  13. IMURAN [Concomitant]
     Active Substance: AZATHIOPRINE
     Dosage: 50 MG, 2X/DAY
     Route: 048
     Dates: start: 2007
  14. FLAGYL [Concomitant]
     Active Substance: METRONIDAZOLE\METRONIDAZOLE HYDROCHLORIDE
     Dosage: UNK, 2X/DAY
     Route: 042
     Dates: start: 20180502
  15. INFLECTRA [Suspect]
     Active Substance: INFLIXIMAB-DYYB
     Dosage: 400 MG, 0,2,6 WEEKS, THEN EVERY 8 WEEKS
     Route: 042
     Dates: start: 20180314
  16. INFLECTRA [Suspect]
     Active Substance: INFLIXIMAB-DYYB
     Dosage: 370 MG, (4 VIALS/0, 2, 6 WEEKS, THEN EVERY 8 WEEKS)
     Route: 042
     Dates: start: 20190312
  17. PREDNISONE. [Concomitant]
     Active Substance: PREDNISONE
     Dosage: 15 MG, 1X/DAY TAPER DOSE
     Route: 048
     Dates: start: 20180213
  18. CEFTRIAXONE. [Concomitant]
     Active Substance: CEFTRIAXONE
     Dosage: UNK, 2X/DAY
     Route: 042
     Dates: start: 20180502

REACTIONS (13)
  - Dehydration [Unknown]
  - Heart rate irregular [Unknown]
  - Drug specific antibody present [Unknown]
  - Poor venous access [Unknown]
  - Weight increased [Unknown]
  - Anal abscess [Recovered/Resolved]
  - Condition aggravated [Recovered/Resolved]
  - Drug level below therapeutic [Unknown]
  - Nausea [Recovering/Resolving]
  - Joint stiffness [Unknown]
  - Dizziness [Recovering/Resolving]
  - Therapeutic product effect decreased [Unknown]
  - Pyrexia [Recovering/Resolving]

NARRATIVE: CASE EVENT DATE: 20180605
